FAERS Safety Report 20541585 (Version 1)
Quarter: 2022Q1

REPORT INFORMATION
  Report Type: Report from Study
  Country: BR (occurrence: BR)
  Receive Date: 20220302
  Receipt Date: 20220302
  Transmission Date: 20220424
  Serious: Yes (Other)
  Sender: FDA-Public Use
  Company Number: BR-JNJFOC-20211042192

PATIENT
  Age: 40 Year
  Sex: Male
  Weight: 84 kg

DRUGS (1)
  1. REMICADE [Suspect]
     Active Substance: INFLIXIMAB
     Indication: Colitis
     Route: 042

REACTIONS (4)
  - Intestinal stenosis [Unknown]
  - Hypersensitivity [Unknown]
  - Infusion related reaction [Unknown]
  - Colitis [Unknown]

NARRATIVE: CASE EVENT DATE: 20201201
